FAERS Safety Report 14357101 (Version 1)
Quarter: 2018Q1

REPORT INFORMATION
  Report Type: Spontaneous
  Country: CL (occurrence: CL)
  Receive Date: 20180105
  Receipt Date: 20180105
  Transmission Date: 20180509
  Serious: Yes (Other)
  Sender: FDA-Public Use
  Company Number: PHHY2017CL191983

PATIENT
  Age: 84 Year
  Sex: Female

DRUGS (1)
  1. METHYLPREDNISOLONE. [Suspect]
     Active Substance: METHYLPREDNISOLONE
     Indication: TEMPOROMANDIBULAR JOINT SYNDROME
     Dosage: 10 MG (0.25-ML) INFILTRATION OF INTRAARTICULAR
     Route: 014

REACTIONS (4)
  - Product use in unapproved indication [Unknown]
  - Instillation site atrophy [Unknown]
  - Skin depigmentation [Unknown]
  - Injection site discolouration [Unknown]
